FAERS Safety Report 20062693 (Version 1)
Quarter: 2021Q4

REPORT INFORMATION
  Report Type: Spontaneous
  Country: US (occurrence: None)
  Receive Date: 20211111
  Receipt Date: 20211111
  Transmission Date: 20220303
  Serious: Yes (Other)
  Sender: FDA-Public Use
  Company Number: None

PATIENT
  Age: 70 Year
  Sex: Male
  Weight: 77.3 kg

DRUGS (1)
  1. DUPIXENT [Suspect]
     Active Substance: DUPILUMAB
     Indication: Eczema
     Dosage: OTHER FREQUENCY : Q14 DAYS;?
     Route: 030
     Dates: start: 20210720, end: 20211109

REACTIONS (4)
  - Injection site swelling [None]
  - Injection site erythema [None]
  - Injection site warmth [None]
  - Injection site pain [None]

NARRATIVE: CASE EVENT DATE: 20211109
